FAERS Safety Report 6376150-X (Version None)
Quarter: 2009Q3

REPORT INFORMATION
  Report Type: 
  Country: None (occurrence: None)
  Receive Date: 20090921
  Receipt Date: 20090904
  Transmission Date: 20100115
  Serious: Yes (Hospitalization, Other)
  Sender: FDA-Public Use
  Company Number: 2009BM000216

PATIENT
  Age: 21 Month
  Sex: Female
  Weight: 10.3 kg

DRUGS (1)
  1. NAGLAZYME [Suspect]
     Indication: MUCOPOLYSACCHARIDOSIS VI
     Dosage: 1 MG/KG;QW;IVDRP
     Route: 041
     Dates: start: 20081016

REACTIONS (1)
  - CERVICAL CORD COMPRESSION [None]
